FAERS Safety Report 21663983 (Version 2)
Quarter: 2022Q4

REPORT INFORMATION
  Report Type: Spontaneous
  Country: JP (occurrence: JP)
  Receive Date: 20221130
  Receipt Date: 20221228
  Transmission Date: 20230113
  Serious: Yes (Hospitalization, Other)
  Sender: FDA-Public Use
  Company Number: JP-ELI_LILLY_AND_COMPANY-JP202211010689

PATIENT
  Age: 84 Year
  Sex: Female

DRUGS (2)
  1. CYRAMZA [Suspect]
     Active Substance: RAMUCIRUMAB
     Indication: Lung neoplasm malignant
     Dosage: 10 MG/KG, UNKNOWN
     Route: 041
     Dates: start: 202209
  2. TARCEVA [Suspect]
     Active Substance: ERLOTINIB HYDROCHLORIDE
     Indication: Lung neoplasm malignant
     Dosage: 150 MG, UNKNOWN
     Route: 048
     Dates: start: 202209

REACTIONS (2)
  - Thrombophlebitis migrans [Unknown]
  - Malignant neoplasm progression [Unknown]
